FAERS Safety Report 24278286 (Version 1)
Quarter: 2024Q3

REPORT INFORMATION
  Report Type: Spontaneous
  Country: US (occurrence: US)
  Receive Date: 20240903
  Receipt Date: 20240903
  Transmission Date: 20241017
  Serious: No
  Sender: TEVA
  Company Number: US-TEVA-VS-3233609

PATIENT
  Age: 23 Year
  Sex: Male
  Weight: 136.08 kg

DRUGS (4)
  1. UZEDY [Suspect]
     Active Substance: RISPERIDONE
     Indication: Product used for unknown indication
     Dosage: DOSE: 250/0.7 MG/ML, BI-MONTHLY UZEDY 250MG FOR A FEW MONTHS NOW
     Route: 065
  2. CHLORPROMAZINE [Concomitant]
     Active Substance: CHLORPROMAZINE
     Route: 048
  3. Caplytab [Concomitant]
     Route: 048
  4. DEPAKOTE [Concomitant]
     Active Substance: DIVALPROEX SODIUM
     Route: 048

REACTIONS (1)
  - Therapeutic response shortened [Unknown]
